FAERS Safety Report 17006145 (Version 2)
Quarter: 2019Q4

REPORT INFORMATION
  Report Type: Report from Study
  Country: DE (occurrence: DE)
  Receive Date: 20191107
  Receipt Date: 20191213
  Transmission Date: 20200122
  Serious: Yes (Death, Other)
  Sender: FDA-Public Use
  Company Number: DE-GILEAD-2019-0436380

PATIENT
  Age: 34 Year
  Sex: Male
  Weight: 110 kg

DRUGS (6)
  1. SYMTUZA [Concomitant]
     Active Substance: COBICISTAT\DARUNAVIR\EMTRICITABINE\TENOFOVIR ALAFENAMIDE
     Indication: HIV INFECTION
     Dosage: UNK
     Route: 048
     Dates: start: 20171130
  2. RITONAVIR. [Concomitant]
     Active Substance: RITONAVIR
  3. EMTRICITABINE/TENOFOVIR ALAFENAMIDE [Suspect]
     Active Substance: EMTRICITABINE\TENOFOVIR
     Indication: HIV INFECTION
     Dosage: 1 DOSAGE FORM (200MG,10MG), QD
     Route: 065
  4. DARUNAVIR [Concomitant]
     Active Substance: DARUNAVIR
  5. PANTOPRAZOLE [Concomitant]
     Active Substance: PANTOPRAZOLE
     Dosage: 40 MG, UNK
     Dates: start: 20170629
  6. PANKREATAN [Concomitant]
     Dosage: UNK
     Dates: start: 20190425

REACTIONS (1)
  - Thrombosis [Fatal]

NARRATIVE: CASE EVENT DATE: 20190915
